FAERS Safety Report 16019210 (Version 1)
Quarter: 2019Q1

REPORT INFORMATION
  Report Type: Spontaneous
  Country: FR (occurrence: FR)
  Receive Date: 20190228
  Receipt Date: 20190228
  Transmission Date: 20190418
  Serious: Yes (Hospitalization)
  Sender: FDA-Public Use
  Company Number: FR-TEVA-2019-FR-1017039

PATIENT
  Age: 48 Year
  Sex: Male
  Weight: 110 kg

DRUGS (6)
  1. UROMITEXAN [Concomitant]
     Active Substance: MESNA
  2. KIDROLASE [Concomitant]
     Active Substance: ASPARAGINASE
  3. ARACYTINE [Concomitant]
     Active Substance: CYTARABINE
  4. HYDROCORTANCYL [Concomitant]
     Active Substance: PREDNISONE
  5. VINCRISTINE (SULFATE DE) [Suspect]
     Active Substance: VINCRISTINE SULFATE
     Route: 042
     Dates: start: 20140723
  6. ENDOXAN [Concomitant]
     Active Substance: CYCLOPHOSPHAMIDE

REACTIONS (1)
  - Subileus [Unknown]

NARRATIVE: CASE EVENT DATE: 20140815
